FAERS Safety Report 17222088 (Version 4)
Quarter: 2022Q3

REPORT INFORMATION
  Report Type: Spontaneous
  Country: US (occurrence: None)
  Receive Date: 20200101
  Receipt Date: 20220710
  Transmission Date: 20221027
  Serious: No
  Sender: FDA-Public Use
  Company Number: 2019SF74552

PATIENT
  Sex: Male
  Weight: 107 kg

DRUGS (4)
  1. BYDUREON BCISE [Suspect]
     Active Substance: EXENATIDE
     Indication: Blood glucose fluctuation
     Route: 058
     Dates: start: 2018
  2. BYDUREON BCISE [Suspect]
     Active Substance: EXENATIDE
     Indication: Type 2 diabetes mellitus
     Route: 058
     Dates: start: 2018
  3. BYDUREON BCISE [Suspect]
     Active Substance: EXENATIDE
     Indication: Blood glucose fluctuation
     Dosage: 2MG, BOX OF 42.0MG UNKNOWN
     Route: 058
  4. BYDUREON BCISE [Suspect]
     Active Substance: EXENATIDE
     Indication: Type 2 diabetes mellitus
     Dosage: 2MG, BOX OF 42.0MG UNKNOWN
     Route: 058

REACTIONS (9)
  - Injection site pain [Unknown]
  - Injection site haemorrhage [Unknown]
  - Blood glucose increased [Unknown]
  - Drug dose omission by device [Unknown]
  - Wrong technique in device usage process [Unknown]
  - Incorrect dose administered by device [Unknown]
  - Needle issue [Unknown]
  - Device malfunction [Unknown]
  - Device use issue [Unknown]
